FAERS Safety Report 10552639 (Version 12)
Quarter: 2016Q2

REPORT INFORMATION
  Report Type: Report from Study
  Country: US (occurrence: US)
  Receive Date: 20141029
  Receipt Date: 20160525
  Transmission Date: 20160815
  Serious: Yes (Hospitalization, Other)
  Sender: FDA-Public Use
  Company Number: US-SA-2014SA134101

PATIENT
  Age: 57 Year
  Sex: Female

DRUGS (2)
  1. AUBAGIO [Suspect]
     Active Substance: TERIFLUNOMIDE
     Indication: MULTIPLE SCLEROSIS
     Route: 048
     Dates: start: 20140904
  2. AUBAGIO [Suspect]
     Active Substance: TERIFLUNOMIDE
     Indication: MULTIPLE SCLEROSIS
     Route: 048
     Dates: start: 201509, end: 201601

REACTIONS (14)
  - Dyspnoea [Unknown]
  - Confusional state [Unknown]
  - Memory impairment [Unknown]
  - Dyspepsia [Unknown]
  - Skin discolouration [Unknown]
  - Alopecia [Unknown]
  - Constipation [Unknown]
  - Rash [Unknown]
  - Pneumonia [Unknown]
  - Pruritus [Unknown]
  - Interstitial lung disease [Unknown]
  - Malaise [Unknown]
  - Fatigue [Not Recovered/Not Resolved]
  - Gait disturbance [Unknown]

NARRATIVE: CASE EVENT DATE: 201409
